FAERS Safety Report 8517539-X (Version None)
Quarter: 2012Q3

REPORT INFORMATION
  Report Type: 
  Country: None (occurrence: None)
  Receive Date: 20120718
  Receipt Date: 20120706
  Transmission Date: 20120928
  Serious: Yes (Other)
  Sender: FDA-Public Use
  Company Number: JP-BAYER-200912339BYL

PATIENT
  Age: 61 Year
  Sex: Male
  Weight: 70 kg

DRUGS (17)
  1. LOXOPROFEN [Concomitant]
     Dosage: 60 MG, PRN
  2. LASIX [Suspect]
     Dosage: 20 MG (DAILY DOSE), , ORAL
     Route: 048
     Dates: start: 20091020
  3. URSO 250 [Concomitant]
     Dosage: SINCE BEFORE ADMINISTRATION
     Route: 048
  4. PROTECADIN [Concomitant]
     Indication: GASTRITIS PROPHYLAXIS
     Dosage: 20 MG (DAILY DOSE), , ORAL
     Route: 048
     Dates: start: 20090728
  5. SORAFENIB [Suspect]
     Dosage: 400 MG, QD
     Route: 048
     Dates: start: 20090706, end: 20090708
  6. SORAFENIB [Suspect]
     Dosage: 400 MG, QD
     Route: 048
     Dates: start: 20090729, end: 20090812
  7. NORVASC [Concomitant]
     Dosage: 5 MG (DAILY DOSE), , ORAL
     Route: 048
     Dates: start: 20090629
  8. SORAFENIB [Suspect]
     Indication: HEPATIC NEOPLASM MALIGNANT
     Dosage: 400MG, BID
     Route: 048
     Dates: start: 20090630, end: 20090705
  9. GLYCYRON [GLYCYRRHIZIC ACID] [Concomitant]
     Dosage: 6 DF, QD SINCE BEFORE ADMINISTRATION
     Route: 048
  10. LOXOPROFEN [Concomitant]
     Dosage: 120-180MG
     Route: 048
  11. KERATINAMIN [Concomitant]
     Indication: PROPHYLAXIS
     Dosage: UNK UNK, QS
     Route: 061
     Dates: start: 20090629
  12. ESTAZOLAM [Concomitant]
     Indication: PROPHYLAXIS
     Dosage: 1 MG QD
     Route: 048
     Dates: start: 20091201, end: 20091221
  13. SORAFENIB [Suspect]
     Dosage: 400 MG, QD
     Route: 048
     Dates: start: 20090819, end: 20091222
  14. EVAMYL [Concomitant]
     Indication: PROPHYLAXIS
     Dosage: 1 MG, QD, SINCE BEFORE ADMINISTRATION
     Route: 048
     Dates: start: 20090101
  15. RHYTHMY [Concomitant]
     Indication: PROPHYLAXIS
     Dosage: 1 MG (DAILY DOSE), , ORAL
     Route: 048
     Dates: start: 20091117, end: 20091130
  16. LIVACT [Concomitant]
     Dosage: SINCE BEFORE ADMINISTRATION
     Route: 048
  17. ESTAZOLAM [Concomitant]
     Dosage: 2 MG, QD
     Route: 048
     Dates: start: 20091222

REACTIONS (9)
  - GINGIVAL BLEEDING [None]
  - HEPATIC FUNCTION ABNORMAL [None]
  - LIPASE INCREASED [None]
  - DYSPHONIA [None]
  - PALMAR-PLANTAR ERYTHRODYSAESTHESIA SYNDROME [None]
  - FATIGUE [None]
  - HYPERTENSION [None]
  - ALOPECIA [None]
  - HYPOKALAEMIA [None]
